FAERS Safety Report 23949962 (Version 1)
Quarter: 2024Q2

REPORT INFORMATION
  Report Type: Spontaneous
  Country: US (occurrence: None)
  Receive Date: 20240606
  Receipt Date: 20240606
  Transmission Date: 20240716
  Serious: No
  Sender: FDA-Public Use
  Company Number: None

PATIENT
  Sex: Male

DRUGS (1)
  1. JAKAFI [Suspect]
     Active Substance: RUXOLITINIB
     Indication: Polycythaemia vera
     Dosage: 1 TOT -TOTAL TWICE A DAY ORAL?
     Route: 048
     Dates: start: 20230329

REACTIONS (3)
  - Multiple fractures [None]
  - Therapy interrupted [None]
  - Thrombosis [None]
